FAERS Safety Report 8996801 (Version 1)
Quarter: 2012Q4

REPORT INFORMATION
  Report Type: Spontaneous
  Country: US (occurrence: None)
  Receive Date: 20121228
  Receipt Date: 20121228
  Transmission Date: 20130627
  Serious: Yes (Other)
  Sender: FDA-Public Use
  Company Number: None

PATIENT
  Age: 68 Year
  Sex: Male
  Weight: 90.72 kg

DRUGS (1)
  1. LISINOPRIL [Suspect]
     Dosage: 1 Tablet Daily
6-26  -  11-05-12

REACTIONS (4)
  - Bone pain [None]
  - Myalgia [None]
  - Movement disorder [None]
  - Impaired driving ability [None]
